FAERS Safety Report 16958456 (Version 2)
Quarter: 2019Q4

REPORT INFORMATION
  Report Type: Spontaneous
  Country: US (occurrence: US)
  Receive Date: 20191024
  Receipt Date: 20191220
  Transmission Date: 20200122
  Serious: Yes (Other)
  Sender: FDA-Public Use
  Company Number: US-COOPERSURGICAL, INC.-US-2019CPS003214

PATIENT
  Age: 33 Year
  Sex: Female
  Weight: 72.11 kg

DRUGS (1)
  1. PARAGARD T 380A [Suspect]
     Active Substance: COPPER
     Indication: CONTRACEPTION
     Dosage: UNK
     Route: 015
     Dates: start: 20190426, end: 20191011

REACTIONS (6)
  - Menorrhagia [Unknown]
  - Menstruation irregular [Unknown]
  - Unintentional medical device removal [Recovered/Resolved]
  - Abdominal pain [Unknown]
  - Cervical polyp [Unknown]
  - Uterine leiomyoma [Unknown]

NARRATIVE: CASE EVENT DATE: 20191011
